FAERS Safety Report 4956588-5 (Version None)
Quarter: 2006Q1

REPORT INFORMATION
  Report Type: 
  Country: None (occurrence: None)
  Receive Date: 20060322
  Receipt Date: 20060310
  Transmission Date: 20060701
  Serious: Yes (Hospitalization)
  Sender: FDA-Public Use
  Company Number: T200600046

PATIENT
  Age: 90 Year
  Sex: Male

DRUGS (6)
  1. TRAMADOL HCL [Suspect]
     Indication: PAIN
     Dosage: 50 MG, PRN, ORAL
     Route: 048
     Dates: start: 20060301, end: 20060303
  2. ALPHAGAN (BRIMONIDINE TARTRATE), 0.25% [Concomitant]
  3. LEVAQUIN [Concomitant]
  4. BETOPTIC [Concomitant]
  5. FERROUS SULFATE TAB [Concomitant]
  6. CYMBALTA [Concomitant]

REACTIONS (3)
  - CELLULITIS OF MALE EXTERNAL GENITAL ORGAN [None]
  - LARYNGEAL DISORDER [None]
  - THROAT IRRITATION [None]
